FAERS Safety Report 5662701-7 (Version None)
Quarter: 2008Q1

REPORT INFORMATION
  Report Type: 
  Country: None (occurrence: None)
  Receive Date: 20080310
  Receipt Date: 20080310
  Transmission Date: 20080703
  Serious: Yes (Death)
  Sender: FDA-Public Use
  Company Number: None

PATIENT
  Age: 62 Year
  Sex: Female
  Weight: 73.0291 kg

DRUGS (2)
  1. EMEND [Suspect]
     Indication: COLON CANCER METASTATIC
     Dosage: 125MG, 80MG, 80MG 3 DAYS WITH EACH  PO
     Route: 048
     Dates: start: 20071120, end: 20080205
  2. PALONONESTRON   0.25MG [Suspect]
     Dosage: 0.25MG DAY 1 PO
     Route: 048

REACTIONS (4)
  - ANOREXIA [None]
  - FAILURE TO THRIVE [None]
  - MENTAL STATUS CHANGES [None]
  - RECTAL HAEMORRHAGE [None]
